FAERS Safety Report 22658717 (Version 1)
Quarter: 2023Q2

REPORT INFORMATION
  Report Type: Spontaneous
  Country: US (occurrence: None)
  Receive Date: 20230629
  Receipt Date: 20230629
  Transmission Date: 20230722
  Serious: Yes (Hospitalization)
  Sender: FDA-Public Use
  Company Number: None

PATIENT
  Age: 70 Year
  Sex: Female

DRUGS (11)
  1. INGREZZA [Suspect]
     Active Substance: VALBENAZINE
     Indication: Tardive dyskinesia
     Dosage: FREQUENCY : DAILY;?
     Route: 048
     Dates: start: 20220708
  2. DEXLANSOPRAZOLE [Concomitant]
     Active Substance: DEXLANSOPRAZOLE
  3. TRAMADOL [Concomitant]
     Active Substance: TRAMADOL
  4. LOSARTAN [Concomitant]
     Active Substance: LOSARTAN
  5. ATORVASTATIN [Concomitant]
     Active Substance: ATORVASTATIN
  6. TEMAZEPAM [Concomitant]
     Active Substance: TEMAZEPAM
  7. OLANZAPINE [Concomitant]
     Active Substance: OLANZAPINE
  8. PROLIA [Concomitant]
     Active Substance: DENOSUMAB
  9. TRAZODONE [Concomitant]
     Active Substance: TRAZODONE HYDROCHLORIDE
  10. ESCITALOPRAM [Concomitant]
     Active Substance: ESCITALOPRAM OXALATE
  11. DONEPEZIL [Concomitant]
     Active Substance: DONEPEZIL

REACTIONS (2)
  - Hepatic infection [None]
  - Therapy interrupted [None]

NARRATIVE: CASE EVENT DATE: 20230601
